FAERS Safety Report 5175739-3 (Version None)
Quarter: 2006Q4

REPORT INFORMATION
  Report Type: 
  Country: None (occurrence: None)
  Receive Date: 20061215
  Receipt Date: 20061121
  Transmission Date: 20070319
  Serious: Yes (Other)
  Sender: FDA-Public Use
  Company Number: PHEH2006US14504

PATIENT
  Age: 71 Year
  Sex: Male

DRUGS (3)
  1. ZOMETA [Suspect]
     Indication: PROSTATE CANCER METASTATIC
     Dosage: 4 MG IV MONTHLY
     Dates: start: 20050101, end: 20061001
  2. LUPRON [Concomitant]
     Indication: PROSTATE CANCER
     Dosage: 22.5 MG EVERY 3 MONTHS
     Route: 030
     Dates: start: 20031101
  3. ZOLADEX [Concomitant]
     Indication: PROSTATE CANCER
     Dosage: 3.6 MG EVERY MONTH
     Route: 030
     Dates: start: 20031101

REACTIONS (7)
  - DENTAL CARIES [None]
  - IMPAIRED HEALING [None]
  - ORAL DISCOMFORT [None]
  - OSTEONECROSIS [None]
  - PAIN [None]
  - TOOTH EXTRACTION [None]
  - TOOTH INFECTION [None]
